FAERS Safety Report 5191167-9 (Version None)
Quarter: 2006Q4

REPORT INFORMATION
  Report Type: 
  Country: None (occurrence: None)
  Receive Date: 20061218
  Receipt Date: 20061206
  Transmission Date: 20070319
  Serious: Yes (Other)
  Sender: FDA-Public Use
  Company Number: 2006152014

PATIENT
  Sex: Female

DRUGS (3)
  1. SOLU-MEDROL [Suspect]
     Indication: HYPERSENSITIVITY
     Dosage: 40 MG
  2. METHYLPREDNISOLONE [Suspect]
     Indication: HYPERSENSITIVITY
     Dosage: 64 MG
  3. AUGMENTIN '125' [Concomitant]

REACTIONS (2)
  - CONDITION AGGRAVATED [None]
  - HYPERSENSITIVITY [None]
